FAERS Safety Report 24685602 (Version 1)
Quarter: 2024Q4

REPORT INFORMATION
  Report Type: Spontaneous
  Country: NO (occurrence: NO)
  Receive Date: 20241202
  Receipt Date: 20241202
  Transmission Date: 20250115
  Serious: Yes (Other)
  Sender: BAYER HEALTHCARE PHARMACEUTICALS INC.
  Company Number: None

PATIENT
  Age: 23 Year
  Sex: Female
  Weight: 61 kg

DRUGS (4)
  1. DROSPIRENONE [Suspect]
     Active Substance: DROSPIRENONE
     Indication: Acne
     Dosage: 1 DF, QD
     Route: 048
     Dates: start: 20240829, end: 20240915
  2. ISOTRETINOIN ORIFARM [Concomitant]
     Indication: Acne
     Dosage: 10 MG, QD
     Route: 048
     Dates: start: 20240910
  3. KEPPRA [Concomitant]
     Active Substance: LEVETIRACETAM
     Indication: Juvenile myoclonic epilepsy
     Dosage: 750 MG MORNING AND 500 MG EVENING.
     Route: 048
     Dates: start: 20240826
  4. LAMICTAL [Concomitant]
     Active Substance: LAMOTRIGINE
     Indication: Juvenile myoclonic epilepsy
     Dosage: THE PATIENT REPORTS TO HAVE BEEN TAPERING THE DRUG (DUE TO CHANGE OF MEDICATION): 100 MG MORNING AND
     Route: 048
     Dates: end: 20241014

REACTIONS (9)
  - Suicidal ideation [Recovered/Resolved]
  - Depression [Recovering/Resolving]
  - Irritability [Recovering/Resolving]
  - Suspiciousness [Recovering/Resolving]
  - Fatigue [Recovering/Resolving]
  - Asthenia [Recovering/Resolving]
  - Aggression [Recovered/Resolved with Sequelae]
  - Depressed mood [Recovered/Resolved]
  - Crying [Unknown]

NARRATIVE: CASE EVENT DATE: 20240901
